FAERS Safety Report 20171192 (Version 4)
Quarter: 2022Q1

REPORT INFORMATION
  Report Type: Report from Study
  Country: CN (occurrence: None)
  Receive Date: 20211210
  Receipt Date: 20220125
  Transmission Date: 20220423
  Serious: Yes (Hospitalization)
  Sender: FDA-Public Use
  Company Number: CN-ROCHE-2970991

PATIENT
  Age: 32 Year
  Sex: Male
  Weight: 56 kg

DRUGS (14)
  1. VEMURAFENIB [Suspect]
     Active Substance: VEMURAFENIB
     Indication: Neoplasm
     Route: 048
     Dates: start: 20210709, end: 20211021
  2. EBASTINE [Concomitant]
     Active Substance: EBASTINE
     Route: 048
     Dates: start: 20210714, end: 20210722
  3. HALCINONIDE [Concomitant]
     Active Substance: HALCINONIDE
     Dosage: SUBSEQUENT DOSE RECEIVED ON 24/JUL/2021
     Dates: start: 20210714, end: 20210820
  4. TRIAMCINOLONE ACETONIDE [Concomitant]
     Active Substance: TRIAMCINOLONE ACETONIDE
     Dosage: SUBSEQUENT DOSE RECEIVED ON 24/JUL/2021
     Dates: start: 20210714, end: 20210820
  5. ECONAZOLE [Concomitant]
     Active Substance: ECONAZOLE
     Dosage: SUBSEQUENT DOSE RECEIVED ON 24/JUL/2021
     Dates: start: 20210714, end: 20210820
  6. DEXAMETHASONE SODIUM PHOSPHATE [Concomitant]
     Active Substance: DEXAMETHASONE SODIUM PHOSPHATE
     Dosage: 7.5 MG IVGTT
     Dates: start: 20210719, end: 20210721
  7. DEXAMETHASONE SODIUM PHOSPHATE [Concomitant]
     Active Substance: DEXAMETHASONE SODIUM PHOSPHATE
     Dosage: 5 MG IVGTT
     Dates: start: 20210721, end: 20210723
  8. DEXAMETHASONE SODIUM PHOSPHATE [Concomitant]
     Active Substance: DEXAMETHASONE SODIUM PHOSPHATE
     Dosage: 7 TABLETS
     Route: 048
     Dates: start: 20210724, end: 20210729
  9. DEXAMETHASONE SODIUM PHOSPHATE [Concomitant]
     Active Substance: DEXAMETHASONE SODIUM PHOSPHATE
     Dosage: 7 TABLETS
     Route: 048
     Dates: start: 20210730, end: 20210803
  10. DEXAMETHASONE SODIUM PHOSPHATE [Concomitant]
     Active Substance: DEXAMETHASONE SODIUM PHOSPHATE
     Dosage: 7 TABLETS
     Route: 048
     Dates: start: 20210804
  11. CELECOXIB [Concomitant]
     Active Substance: CELECOXIB
     Route: 048
     Dates: start: 20210724
  12. CALCIUM CARBONATE\CHOLECALCIFEROL [Concomitant]
     Active Substance: CALCIUM CARBONATE\CHOLECALCIFEROL
     Route: 048
     Dates: start: 20210724
  13. OMEPRAZOLE [Concomitant]
     Active Substance: OMEPRAZOLE
     Route: 048
     Dates: start: 20210724
  14. POTASSIUM CHLORIDE [Concomitant]
     Active Substance: POTASSIUM CHLORIDE
     Route: 048
     Dates: start: 20210724

REACTIONS (1)
  - Dermatitis acneiform [Recovered/Resolved]

NARRATIVE: CASE EVENT DATE: 20210713
